FAERS Safety Report 4601364-6 (Version None)
Quarter: 2005Q1

REPORT INFORMATION
  Report Type: 
  Country: None (occurrence: None)
  Receive Date: 20050204
  Receipt Date: 20040707
  Transmission Date: 20050727
  Serious: Yes (Other)
  Sender: FDA-Public Use
  Company Number: 800047

PATIENT
  Age: 62 Year
  Sex: Female
  Weight: 95.2554 kg

DRUGS (33)
  1. DIANEAL [Suspect]
     Indication: PERITONEAL DIALYSIS
     Dosage: 5 BAG; QD; INTRAPERITONEAL
     Route: 033
     Dates: end: 20040707
  2. NPH INSULIN [Concomitant]
  3. KEFLEX [Concomitant]
  4. MICRONASE [Concomitant]
  5. ACTOS ^LILLY^ [Concomitant]
  6. PROTONIX [Concomitant]
  7. ZOCOR [Concomitant]
  8. INH [Concomitant]
  9. PYRIDOXINE HCL [Concomitant]
  10. NIFEREX [Concomitant]
  11. VITAMIN C [Concomitant]
  12. VITAMIN E [Concomitant]
  13. FOLIC ACID [Concomitant]
  14. ASPIRIN [Concomitant]
  15. RENAGEL [Concomitant]
  16. PROZAC [Concomitant]
  17. REGULAR INSULIN [Concomitant]
  18. EXSEL [Concomitant]
  19. MUPIROCIN [Concomitant]
  20. ROCALTROL [Concomitant]
  21. NEURONTIN [Concomitant]
  22. POTASSIUM CHLORIDE [Concomitant]
  23. EPOGEN [Concomitant]
  24. REGLAN [Concomitant]
  25. ATROVENT [Concomitant]
  26. IMODIUM A-D [Concomitant]
  27. RELAFEN [Concomitant]
  28. DARVOCET-N 100 [Concomitant]
  29. TIGAN [Concomitant]
  30. RESTORIL [Concomitant]
  31. QUININE SULFATE [Concomitant]
  32. ATARAX [Concomitant]
  33. NEPHROCAPS [Concomitant]

REACTIONS (1)
  - PERITONITIS [None]
